FAERS Safety Report 17502302 (Version 5)
Quarter: 2021Q1

REPORT INFORMATION
  Report Type: Spontaneous
  Country: US (occurrence: US)
  Receive Date: 20200305
  Receipt Date: 20210208
  Transmission Date: 20210419
  Serious: Yes (Other)
  Sender: FDA-Public Use
  Company Number: US-PFIZER INC-2020096357

PATIENT
  Age: 57 Year
  Sex: Male

DRUGS (2)
  1. XELJANZ [Suspect]
     Active Substance: TOFACITINIB CITRATE
     Indication: RHEUMATOID ARTHRITIS
     Dosage: 5 MG, 2X/DAY
     Route: 048
     Dates: start: 20191202
  2. XELJANZ XR [Suspect]
     Active Substance: TOFACITINIB CITRATE
     Indication: RHEUMATOID ARTHRITIS
     Dosage: 11 MG, DAILY
     Route: 048
     Dates: start: 20191202

REACTIONS (23)
  - Back pain [Not Recovered/Not Resolved]
  - Neuropathy peripheral [Not Recovered/Not Resolved]
  - Intentional dose omission [Unknown]
  - Intervertebral disc protrusion [Unknown]
  - Frustration tolerance decreased [Unknown]
  - Peripheral swelling [Unknown]
  - Product dispensing error [Unknown]
  - Therapeutic product effect incomplete [Not Recovered/Not Resolved]
  - Depressed mood [Unknown]
  - Abdominal discomfort [Unknown]
  - Spinal fracture [Unknown]
  - Hypoaesthesia [Unknown]
  - Depression [Unknown]
  - Impaired work ability [Unknown]
  - Product dose omission issue [Unknown]
  - Arthralgia [Not Recovered/Not Resolved]
  - Paraesthesia [Unknown]
  - Intervertebral disc degeneration [Unknown]
  - Urinary tract infection [Unknown]
  - Poor peripheral circulation [Unknown]
  - Muscle spasms [Unknown]
  - Fatigue [Unknown]
  - Liver function test abnormal [Unknown]
